FAERS Safety Report 9199987 (Version 2)
Quarter: 2013Q2

REPORT INFORMATION
  Report Type: Spontaneous
  Country: DE (occurrence: DE)
  Receive Date: 20130329
  Receipt Date: 20130425
  Transmission Date: 20140414
  Serious: Yes (Hospitalization)
  Sender: FDA-Public Use
  Company Number: DE-ROCHE-1207620

PATIENT
  Age: 58 Year
  Sex: Female
  Weight: 69 kg

DRUGS (6)
  1. PERJETA [Suspect]
     Indication: BREAST CANCER METASTATIC
     Route: 042
     Dates: start: 20130326, end: 20130326
  2. TRASTUZUMAB [Suspect]
     Indication: BREAST CANCER METASTATIC
     Route: 042
     Dates: start: 20130326, end: 20130326
  3. DEXAMETHASONE [Concomitant]
     Route: 048
     Dates: start: 20130324, end: 20130326
  4. DENOSUMAB [Concomitant]
     Indication: METASTASES TO BONE
     Route: 058
     Dates: start: 20130326
  5. IBUPROFEN [Concomitant]
     Indication: PAIN
     Route: 048
     Dates: start: 20130225
  6. NOVALGIN [Concomitant]
     Indication: PAIN
     Route: 048
     Dates: start: 20130225

REACTIONS (4)
  - Anaphylactic shock [Recovered/Resolved]
  - Chills [Recovered/Resolved]
  - Pain in extremity [Recovered/Resolved]
  - Abdominal pain upper [Recovered/Resolved]
